FAERS Safety Report 19073984 (Version 2)
Quarter: 2021Q1

REPORT INFORMATION
  Report Type: Spontaneous
  Country: US (occurrence: US)
  Receive Date: 20210330
  Receipt Date: 20210331
  Transmission Date: 20210420
  Serious: Yes (Other)
  Sender: FDA-Public Use
  Company Number: US-SPECGX-T202100758

PATIENT
  Sex: Female
  Weight: 67 kg

DRUGS (1)
  1. DEXTROAMPHET SACCHARAT, AMPHET ASPARTATE, DEXTROAMPHET SULFATE AND AMPHET SULFAT [Suspect]
     Active Substance: AMPHETAMINE ASPARTATE\AMPHETAMINE SULFATE\DEXTROAMPHETAMINE SACCHARATE\DEXTROAMPHETAMINE SULFATE
     Indication: ATTENTION DEFICIT HYPERACTIVITY DISORDER
     Dosage: 10 MILLIGRAM,
     Route: 048

REACTIONS (7)
  - Cardiac flutter [Recovering/Resolving]
  - Drug ineffective [Unknown]
  - Insomnia [Recovering/Resolving]
  - Bruxism [Recovering/Resolving]
  - Feeling abnormal [Recovering/Resolving]
  - Feeling jittery [Recovering/Resolving]
  - Headache [Recovering/Resolving]
